FAERS Safety Report 25853071 (Version 1)
Quarter: 2025Q3

REPORT INFORMATION
  Report Type: Spontaneous
  Country: US (occurrence: None)
  Receive Date: 20250925
  Receipt Date: 20250925
  Transmission Date: 20251020
  Serious: Yes (Life-Threatening, Hospitalization)
  Sender: FDA-CTU
  Company Number: None

PATIENT
  Age: 53 Year
  Sex: Female
  Weight: 52.2 kg

DRUGS (3)
  1. SCOPOLAMINE [Suspect]
     Active Substance: SCOPOLAMINE
     Indication: Motion sickness
     Route: 061
     Dates: start: 20250924, end: 20250924
  2. SCOPOLAMINE [Suspect]
     Active Substance: SCOPOLAMINE
     Indication: Prophylaxis
  3. estrogen/progrsterone [Concomitant]

REACTIONS (5)
  - Heat stroke [None]
  - Hypotension [None]
  - Temperature regulation disorder [None]
  - Hallucination [None]
  - Product use complaint [None]

NARRATIVE: CASE EVENT DATE: 20250924
